FAERS Safety Report 25309247 (Version 2)
Quarter: 2025Q2

REPORT INFORMATION
  Report Type: Report from Study
  Country: KR (occurrence: KR)
  Receive Date: 20250513
  Receipt Date: 20250522
  Transmission Date: 20250716
  Serious: Yes (Other)
  Sender: JAZZ
  Company Number: KR-BR-2025-0082

PATIENT
  Age: 75 Year
  Sex: Male
  Weight: 54.1 kg

DRUGS (3)
  1. LURBINECTEDIN [Suspect]
     Active Substance: LURBINECTEDIN
     Indication: Small cell lung cancer
     Dosage: 2.6 MILLIGRAM PER SQUARE METER, Q3W
     Route: 042
     Dates: start: 20240712
  2. LURBINECTEDIN [Suspect]
     Active Substance: LURBINECTEDIN
     Dosage: 3.2 MILLIGRAM PER SQUARE METER, Q3W
     Route: 042
     Dates: start: 20240826, end: 20240826
  3. HYTRIN [Concomitant]
     Active Substance: TERAZOSIN HYDROCHLORIDE
     Indication: Hypertension
     Dates: start: 20240906

REACTIONS (1)
  - Seizure [Not Recovered/Not Resolved]

NARRATIVE: CASE EVENT DATE: 20240912
